FAERS Safety Report 8731752 (Version 2)
Quarter: 2012Q4

REPORT INFORMATION
  Report Type: 
  Country: CA (occurrence: CA)
  Receive Date: 20120820
  Receipt Date: 20120918
  Transmission Date: 20130627
  Serious: Yes (Other)
  Sender: FDA-Public Use
  Company Number: PHHY2012CA069476

PATIENT
  Age: 74 Year
  Sex: Female

DRUGS (10)
  1. ACLASTA [Suspect]
     Indication: OSTEOPOROSIS
     Route: 042
     Dates: start: 20111103
  2. ADAVIN [Concomitant]
     Dosage: 500 mg, BID
  3. DOMPERIDONE [Concomitant]
     Dosage: 10 ug, BID
     Route: 048
  4. CIPRALEX [Concomitant]
     Dosage: 20 mg, QD
     Route: 048
  5. CRESTOR [Concomitant]
     Dosage: 10 mg, QD
     Route: 048
  6. TECTA [Concomitant]
     Dosage: 40 ug, UNK
     Route: 048
  7. DAXAS [Concomitant]
     Dosage: 500 ug, UNK
     Route: 048
  8. PRIMIDONE [Concomitant]
     Dosage: 0.5 DF, UNK
     Route: 048
  9. SPIRIVA [Concomitant]
  10. SYNTHROID [Concomitant]
     Dosage: 88 mg, UNK
     Route: 048

REACTIONS (3)
  - Nephrolithiasis [Recovered/Resolved]
  - Flank pain [Recovered/Resolved]
  - Calculus ureteric [Recovered/Resolved]
